FAERS Safety Report 11300693 (Version 1)
Quarter: 2015Q3

REPORT INFORMATION
  Report Type: Spontaneous
  Country: US (occurrence: US)
  Receive Date: 20150722
  Receipt Date: 20150722
  Transmission Date: 20151125
  Serious: Yes (Hospitalization)
  Sender: FDA-Public Use
  Company Number: US-ELI_LILLY_AND_COMPANY-US201209004780

PATIENT
  Sex: Male

DRUGS (6)
  1. EFFIENT [Suspect]
     Active Substance: PRASUGREL HYDROCHLORIDE
     Indication: STENT PLACEMENT
     Dosage: UNK, UNKNOWN
     Route: 065
  2. PLAVIX [Concomitant]
     Active Substance: CLOPIDOGREL BISULFATE
     Dosage: UNK, UNKNOWN
     Route: 065
  3. NITROGLYCERIN. [Concomitant]
     Active Substance: NITROGLYCERIN
     Dosage: UNK, UNKNOWN
     Route: 065
  4. HEPARIN [Concomitant]
     Active Substance: HEPARIN SODIUM
     Dosage: UNK, UNKNOWN
     Route: 065
  5. INTEGRILIN [Concomitant]
     Active Substance: EPTIFIBATIDE
     Dosage: UNK, UNKNOWN
     Route: 065
  6. ANGIOMAX [Concomitant]
     Active Substance: BIVALIRUDIN
     Dosage: UNK, UNKNOWN
     Route: 065

REACTIONS (1)
  - Rash [Recovering/Resolving]
